FAERS Safety Report 17192739 (Version 1)
Quarter: 2019Q4

REPORT INFORMATION
  Report Type: Spontaneous
  Country: US (occurrence: US)
  Receive Date: 20191223
  Receipt Date: 20191223
  Transmission Date: 20200122
  Serious: No
  Sender: FDA-Public Use
  Company Number: US-SA-2019SA353824

PATIENT
  Sex: Female

DRUGS (2)
  1. DUPIXENT [Suspect]
     Active Substance: DUPILUMAB
     Indication: ASTHMA
     Dosage: 200 MG, QOW
     Route: 058
     Dates: start: 20190429, end: 201910
  2. DUPIXENT [Suspect]
     Active Substance: DUPILUMAB
     Indication: NASAL POLYPS

REACTIONS (3)
  - Dry skin [Unknown]
  - Lacrimation increased [Unknown]
  - Oral herpes [Unknown]
